FAERS Safety Report 9008759 (Version 5)
Quarter: 2013Q2

REPORT INFORMATION
  Report Type: Report from Study
  Country: US (occurrence: US)
  Receive Date: 20130111
  Receipt Date: 20130416
  Transmission Date: 20140414
  Serious: Yes (Death, Life-Threatening, Hospitalization)
  Sender: FDA-Public Use
  Company Number: US-MERCK-1301USA003585

PATIENT
  Age: 4 Year
  Sex: Male
  Weight: 17.2 kg

DRUGS (3)
  1. VORINOSTAT [Suspect]
     Indication: BRAIN STEM GLIOMA
     Dosage: 230 MG/M2 ON DAYS 1-5, QW
     Route: 048
     Dates: start: 20120919, end: 20121028
  2. VORINOSTAT [Suspect]
     Dosage: 230 MG/M2, QW CYCLE=28 DAYS
     Route: 048
     Dates: start: 20130108, end: 20130109
  3. VORINOSTAT [Suspect]
     Dosage: 230 MG/M2, QD CYCLE 6=28 DAY
     Route: 048
     Dates: start: 20130306, end: 20130328

REACTIONS (3)
  - Neutrophil count decreased [Not Recovered/Not Resolved]
  - Dyspnoea [Recovering/Resolving]
  - Disease progression [Fatal]
